FAERS Safety Report 9350915 (Version 1)
Quarter: 2013Q2

REPORT INFORMATION
  Report Type: Spontaneous
  Country: US (occurrence: US)
  Receive Date: 20130617
  Receipt Date: 20130617
  Transmission Date: 20140414
  Serious: No
  Sender: FDA-Public Use
  Company Number: US-ASTRAZENECA-2013SE41598

PATIENT
  Age: 71 Year
  Sex: Female
  Weight: 68.9 kg

DRUGS (5)
  1. NEXIUM [Suspect]
     Indication: GASTROOESOPHAGEAL REFLUX DISEASE
     Route: 048
  2. CRESTOR [Suspect]
     Indication: BLOOD CHOLESTEROL ABNORMAL
     Route: 048
     Dates: start: 20130515, end: 20130522
  3. GENERIC ALLEGRA [Concomitant]
     Indication: RHINITIS ALLERGIC
     Dates: start: 1973
  4. ASPRIN [Concomitant]
     Indication: THROMBOSIS
  5. VITAMINS [Concomitant]

REACTIONS (6)
  - Bone pain [Unknown]
  - Thrombosis [Unknown]
  - Fatigue [Recovered/Resolved]
  - Pain in extremity [Not Recovered/Not Resolved]
  - Headache [Recovered/Resolved]
  - Drug eruption [Unknown]
